FAERS Safety Report 11675654 (Version 1)
Quarter: 2015Q4

REPORT INFORMATION
  Report Type: Spontaneous
  Country: US (occurrence: US)
  Receive Date: 20151027
  Receipt Date: 20151027
  Transmission Date: 20160304
  Serious: No
  Sender: FDA-Public Use
  Company Number: US-ELI_LILLY_AND_COMPANY-US201007001708

PATIENT
  Age: 61 Year
  Sex: Female

DRUGS (2)
  1. FORTEO [Suspect]
     Active Substance: TERIPARATIDE
     Dosage: 20 UG, DAILY (1/D)
  2. FORTEO [Suspect]
     Active Substance: TERIPARATIDE
     Indication: OSTEOPOROSIS
     Dosage: 20 UG, DAILY (1/D)
     Dates: start: 20100621

REACTIONS (17)
  - Vomiting [Unknown]
  - Vomiting [Recovered/Resolved]
  - Sleep disorder [Not Recovered/Not Resolved]
  - Fear [Unknown]
  - Pyrexia [Unknown]
  - Peripheral swelling [Recovered/Resolved]
  - Constipation [Unknown]
  - Frequent bowel movements [Recovered/Resolved]
  - Sinus disorder [Unknown]
  - Bone pain [Unknown]
  - Pain in extremity [Recovered/Resolved]
  - Headache [Recovered/Resolved]
  - Swelling [Recovered/Resolved]
  - Dizziness [Unknown]
  - Asthenia [Unknown]
  - Migraine [Unknown]
  - Pain [Not Recovered/Not Resolved]

NARRATIVE: CASE EVENT DATE: 20100627
